FAERS Safety Report 23528369 (Version 1)
Quarter: 2024Q1

REPORT INFORMATION
  Report Type: Spontaneous
  Country: KR (occurrence: KR)
  Receive Date: 20240215
  Receipt Date: 20240215
  Transmission Date: 20240410
  Serious: No
  Sender: FDA-Public Use
  Company Number: KR-WW-2023-APC-180968

PATIENT
  Sex: Male

DRUGS (3)
  1. AVODART [Suspect]
     Active Substance: DUTASTERIDE
     Indication: Benign prostatic hyperplasia
     Route: 065
     Dates: start: 2023
  2. LOXAPINE SUCCINATE [Suspect]
     Active Substance: LOXAPINE SUCCINATE
     Route: 065
     Dates: start: 20231226
  3. PREDNISOLONE [Suspect]
     Active Substance: PREDNISOLONE
     Route: 065
     Dates: start: 20231226

REACTIONS (4)
  - Pain [Unknown]
  - Herpes zoster [Unknown]
  - Dysuria [Unknown]
  - Discomfort [Unknown]

NARRATIVE: CASE EVENT DATE: 20231227
